FAERS Safety Report 23624083 (Version 1)
Quarter: 2024Q1

REPORT INFORMATION
  Report Type: Spontaneous
  Country: US (occurrence: US)
  Receive Date: 20240312
  Receipt Date: 20240312
  Transmission Date: 20240410
  Serious: Yes (Other)
  Sender: FDA-Public Use
  Company Number: US-ABBVIE-5667147

PATIENT
  Age: 71 Year
  Sex: Male

DRUGS (1)
  1. TEFLARO [Suspect]
     Active Substance: CEFTAROLINE FOSAMIL
     Indication: Product used for unknown indication
     Dosage: FORM STRENGTH : CEFTAROLINE FOSAMIL 600MG INJ
     Route: 042

REACTIONS (7)
  - Depressed level of consciousness [Unknown]
  - Tremor [Unknown]
  - Speech disorder [Recovered/Resolved]
  - Tremor [Recovered/Resolved]
  - Renal impairment [Unknown]
  - Skin test positive [Unknown]
  - Blood creatinine abnormal [Unknown]

NARRATIVE: CASE EVENT DATE: 20240304
